FAERS Safety Report 21123906 (Version 1)
Quarter: 2022Q3

REPORT INFORMATION
  Report Type: Other
  Country: None (occurrence: IT)
  Receive Date: 20220725
  Receipt Date: 20220725
  Transmission Date: 20221027
  Serious: Yes (Other)
  Sender: FDA-Public Use
  Company Number: IT-Ajanta Pharma USA Inc.-2131177

PATIENT
  Age: 16 Year
  Sex: Female

DRUGS (3)
  1. LANSOPRAZOLE [Suspect]
     Active Substance: LANSOPRAZOLE
     Indication: Gastritis erosive
     Route: 048
  2. LITHIUM [Concomitant]
     Active Substance: LITHIUM
  3. PERICIAZINE [Concomitant]
     Active Substance: PERICIAZINE

REACTIONS (2)
  - Catatonia [Recovered/Resolved]
  - Depression [Recovered/Resolved]
